FAERS Safety Report 7704408-8 (Version None)
Quarter: 2011Q3

REPORT INFORMATION
  Report Type: 
  Country: None (occurrence: None)
  Receive Date: 20110823
  Receipt Date: 20110815
  Transmission Date: 20111222
  Serious: Yes (Hospitalization)
  Sender: FDA-Public Use
  Company Number: CA-JNJFOC-20110700752

PATIENT
  Sex: Male
  Weight: 73 kg

DRUGS (7)
  1. REMICADE [Suspect]
     Route: 042
     Dates: start: 20081001
  2. CALCIUM CARBONATE [Concomitant]
  3. VITAMIN D [Concomitant]
  4. REMICADE [Suspect]
     Indication: COLITIS ULCERATIVE
     Route: 042
     Dates: start: 20110511
  5. PREDNISONE TAB [Concomitant]
  6. REMICADE [Suspect]
     Route: 042
     Dates: start: 20110701
  7. ACTONEL [Concomitant]

REACTIONS (2)
  - LUNG INFECTION [None]
  - PNEUMOTHORAX [None]
